FAERS Safety Report 25046213 (Version 1)
Quarter: 2025Q1

REPORT INFORMATION
  Report Type: Spontaneous
  Country: ES (occurrence: ES)
  Receive Date: 20250306
  Receipt Date: 20250306
  Transmission Date: 20250409
  Serious: Yes (Life-Threatening, Disabling)
  Sender: ROVIPHARM SAS
  Company Number: None

PATIENT
  Age: 42 Year
  Sex: Male
  Weight: 69 kg

DRUGS (6)
  1. RISPERIDONE [Suspect]
     Active Substance: RISPERIDONE
     Indication: Bipolar II disorder
     Dosage: 100 MG MES
     Route: 030
     Dates: start: 20250124
  2. Lormetazepam 2 mg 20 comprimidos [Concomitant]
     Indication: Schizoaffective disorder
     Dates: start: 20241008
  3. DOVATO 50 MG/300 MG COMPRIMIDOS RECUBIERTOS CON PELICULA, 30 comprimid [Concomitant]
     Indication: HIV infection
  4. VALPROIC ACID [Concomitant]
     Active Substance: VALPROIC ACID
     Route: 048
     Dates: start: 20240524
  5. SEREQUR 320 MG CAPSULAS BLANDAS 30 c?psulas [Concomitant]
     Indication: Prostatism
     Dates: start: 20241113
  6. ZYPADHERA 405 mg POLVO Y DISOLVENTE PARA SUSPENSION INYECTABLE DE LIBE [Concomitant]
     Indication: Schizoaffective disorder
     Route: 030
     Dates: start: 202405, end: 202501

REACTIONS (5)
  - Insomnia [Not Recovered/Not Resolved]
  - Suicidal ideation [Not Recovered/Not Resolved]
  - Anxiety [Not Recovered/Not Resolved]
  - Joint stiffness [Not Recovered/Not Resolved]
  - Muscle rigidity [Not Recovered/Not Resolved]

NARRATIVE: CASE EVENT DATE: 20250126
